FAERS Safety Report 6565905-4 (Version None)
Quarter: 2010Q1

REPORT INFORMATION
  Report Type: 
  Country: None (occurrence: None)
  Receive Date: 20100127
  Receipt Date: 20100112
  Transmission Date: 20100710
  Serious: Yes (Hospitalization)
  Sender: FDA-Public Use
  Company Number: 1-21293718

PATIENT
  Age: 37 Year
  Sex: Female

DRUGS (1)
  1. WARFARIN SODIUM [Suspect]
     Indication: MITRAL VALVE REPLACEMENT

REACTIONS (3)
  - FOOD INTERACTION [None]
  - HAEMATOMA [None]
  - INTERNATIONAL NORMALISED RATIO INCREASED [None]
